FAERS Safety Report 6635729-8 (Version None)
Quarter: 2010Q1

REPORT INFORMATION
  Report Type: 
  Country: None (occurrence: None)
  Receive Date: 20100315
  Receipt Date: 20100302
  Transmission Date: 20100710
  Serious: Yes (Hospitalization)
  Sender: FDA-Public Use
  Company Number: ES-AMGEN-US399196

PATIENT
  Sex: Male
  Weight: 85 kg

DRUGS (7)
  1. ENBREL [Suspect]
     Indication: RHEUMATOID ARTHRITIS
     Route: 058
     Dates: start: 20080731, end: 20100221
  2. METHYLPREDNISOLONE [Concomitant]
     Indication: RHEUMATOID ARTHRITIS
     Route: 048
     Dates: start: 20030203
  3. VALSARTAN [Concomitant]
     Indication: HYPERTENSION
     Dosage: UNKNOWN
     Route: 065
  4. AMLODIPINE [Concomitant]
     Indication: HYPERTENSION
     Route: 048
     Dates: start: 20090525
  5. SIMVASTATIN [Concomitant]
     Indication: HYPERCHOLESTEROLAEMIA
     Dosage: UNKNOWN
     Route: 048
     Dates: start: 20030908
  6. METHOTREXATE [Concomitant]
     Indication: RHEUMATOID ARTHRITIS
     Route: 048
     Dates: start: 20060918, end: 20100221
  7. LANSOPRAZOLE [Concomitant]
     Indication: HIATUS HERNIA
     Route: 048
     Dates: start: 20021007

REACTIONS (2)
  - CONVULSION [None]
  - MUSCULAR WEAKNESS [None]
